FAERS Safety Report 10995783 (Version 1)
Quarter: 2015Q2

REPORT INFORMATION
  Report Type: Spontaneous
  Country: CA (occurrence: CA)
  Receive Date: 20150407
  Receipt Date: 20150407
  Transmission Date: 20150821
  Serious: Yes (Disabling)
  Sender: FDA-Public Use
  Company Number: CA-ACTELION-A-US2015-113990

PATIENT
  Age: 67 Year
  Sex: Female

DRUGS (12)
  1. PANTOLOC [Concomitant]
     Active Substance: PANTOPRAZOLE SODIUM
  2. ADCIRCA [Concomitant]
     Active Substance: TADALAFIL
  3. CARIPUL [Suspect]
     Active Substance: EPOPROSTENOL
     Dosage: 30000 NG/ML, UNK
     Route: 041
     Dates: start: 20140408
  4. CARIPUL [Suspect]
     Active Substance: EPOPROSTENOL
     Indication: PULMONARY ARTERIAL HYPERTENSION
     Dosage: 60000 NG/ML, UNK
     Route: 041
     Dates: start: 20140408
  5. METOPROLOL [Concomitant]
     Active Substance: METOPROLOL
  6. GRAVOL [Concomitant]
     Active Substance: DIMENHYDRINATE
  7. SIMVASTATIN. [Concomitant]
     Active Substance: SIMVASTATIN
  8. ASA [Concomitant]
     Active Substance: ASPIRIN
  9. TRACLEER [Suspect]
     Active Substance: BOSENTAN\BOSENTAN MONOHYDRATE
     Indication: PULMONARY ARTERIAL HYPERTENSION
     Route: 048
  10. TYLENOL WITH CODEINE [Concomitant]
     Active Substance: ACETAMINOPHEN\CODEINE PHOSPHATE
  11. FERROUS FUMARATE [Concomitant]
     Active Substance: FERROUS FUMARATE
  12. HYDROXYCHLOROQUINE [Concomitant]
     Active Substance: HYDROXYCHLOROQUINE

REACTIONS (8)
  - Arthralgia [Unknown]
  - Fall [Unknown]
  - Device dislocation [Unknown]
  - Joint swelling [Unknown]
  - Contusion [Unknown]
  - Ligament sprain [Unknown]
  - Ankle fracture [Unknown]
  - Abasia [Unknown]

NARRATIVE: CASE EVENT DATE: 20150217
